FAERS Safety Report 4975417-7 (Version None)
Quarter: 2006Q2

REPORT INFORMATION
  Report Type: 
  Country: None (occurrence: None)
  Receive Date: 20060411
  Receipt Date: 20060220
  Transmission Date: 20061013
  Serious: Yes (Hospitalization)
  Sender: FDA-Public Use
  Company Number: S06-NOR-01350-01

PATIENT
  Age: 81 Year
  Sex: Female

DRUGS (4)
  1. CIPRALEX (ESCITALOPRAM) [Suspect]
     Indication: DEPRESSION
     Dosage: 10 MG QD PO
     Route: 048
  2. LITHIONIT                 (LITHIUM SULFATE) [Suspect]
     Indication: BIPOLAR DISORDER
     Dosage: 42 MG QD PO
     Route: 048
  3. ALOPAM (OXAZEPAM) [Concomitant]
  4. IMOVANE (ZOPICLONE) [Concomitant]

REACTIONS (4)
  - CONFUSIONAL STATE [None]
  - DRUG INTERACTION [None]
  - HYPERREFLEXIA [None]
  - MUSCLE RIGIDITY [None]
